FAERS Safety Report 9859145 (Version 1)
Quarter: 2014Q1

REPORT INFORMATION
  Report Type: Spontaneous
  Country: GB (occurrence: None)
  Receive Date: 20140129
  Receipt Date: 20140129
  Transmission Date: 20141002
  Serious: Yes (Other)
  Sender: FDA-Public Use
  Company Number: AUR-APL-2014-00627

PATIENT
  Age: 47 Year
  Sex: Female

DRUGS (2)
  1. CLOPIDOGREL [Suspect]
     Indication: PRODUCT USED FOR UNKNOWN INDICATION
     Route: 048
     Dates: start: 20130218
  2. ASPIRIN (ACETYLSALICYLIC ACID) [Concomitant]

REACTIONS (6)
  - Dizziness [None]
  - Dyspepsia [None]
  - Abdominal pain upper [None]
  - Nausea [None]
  - Contusion [None]
  - Pruritus [None]
